FAERS Safety Report 6474222-2 (Version None)
Quarter: 2009Q4

REPORT INFORMATION
  Report Type: 
  Country: None (occurrence: None)
  Receive Date: 20091204
  Receipt Date: 20091124
  Transmission Date: 20100525
  Serious: Yes (Hospitalization)
  Sender: FDA-Public Use
  Company Number: US-ELI_LILLY_AND_COMPANY-US200911000226

PATIENT
  Sex: Female

DRUGS (25)
  1. FORTEO [Suspect]
     Indication: OSTEOPOROSIS
     Dosage: 20 UG, DAILY (1/D)
     Dates: start: 20080101, end: 20090901
  2. CALCIUM                                 /N/A/ [Concomitant]
  3. CIPRO [Concomitant]
  4. MACROBID [Concomitant]
  5. LEVAQUIN [Concomitant]
  6. ACIPHEX [Concomitant]
  7. ADVAIR DISKUS 100/50 [Concomitant]
  8. ALTACE [Concomitant]
  9. ASPIRIN [Concomitant]
  10. BYSTOLIC [Concomitant]
  11. CELEBREX [Concomitant]
  12. CITRACAL + D [Concomitant]
  13. EXFORGE                            /01634301/ [Concomitant]
  14. DEPAKOTE [Concomitant]
  15. EFFEXOR [Concomitant]
  16. EXELON [Concomitant]
  17. IRON [Concomitant]
  18. LEVOTHYROXINE SODIUM [Concomitant]
  19. NAMENDA [Concomitant]
  20. NEURONTIN [Concomitant]
  21. OXYTROL [Concomitant]
  22. PROVIGIL [Concomitant]
  23. VITAPLEX [Concomitant]
  24. AMBIEN [Concomitant]
  25. ALBUTEROL [Concomitant]

REACTIONS (19)
  - ANXIETY [None]
  - BACK PAIN [None]
  - ERYTHEMA [None]
  - FACIAL BONES FRACTURE [None]
  - FALL [None]
  - IMPAIRED HEALING [None]
  - INFLUENZA [None]
  - JOINT SPRAIN [None]
  - KIDNEY INFECTION [None]
  - MUSCLE SPASMS [None]
  - NAUSEA [None]
  - NEPHROLITHIASIS [None]
  - PAIN [None]
  - PAIN IN EXTREMITY [None]
  - PERIORBITAL HAEMATOMA [None]
  - SPINAL COMPRESSION FRACTURE [None]
  - UPPER LIMB FRACTURE [None]
  - URINARY TRACT INFECTION [None]
  - WRIST FRACTURE [None]
